FAERS Safety Report 9145663 (Version 1)
Quarter: 2013Q1

REPORT INFORMATION
  Report Type: Spontaneous
  Country: US (occurrence: None)
  Receive Date: 20130227
  Receipt Date: 20130227
  Transmission Date: 20140127
  Serious: Yes (Other)
  Sender: FDA-Public Use
  Company Number: None

PATIENT
  Age: 54 Year
  Sex: Female
  Weight: 63.5 kg

DRUGS (10)
  1. MONTELUKAST [Suspect]
     Indication: ASTHMA
     Dosage: 10 MG DAILY ORAL
     Route: 048
     Dates: start: 20121008
  2. CHANTIX [Concomitant]
  3. CRESTOR [Concomitant]
  4. FENTANYL [Concomitant]
  5. GABAPENTINE [Concomitant]
  6. LANTUS SOLOSTAR [Concomitant]
  7. METOPROLOL TARTRATE [Concomitant]
  8. OMEPRAZOLE [Concomitant]
  9. RESTASIS [Concomitant]
  10. VAGIFEM [Concomitant]

REACTIONS (2)
  - Dyspnoea [None]
  - Product substitution issue [None]
